FAERS Safety Report 20187438 (Version 1)
Quarter: 2021Q4

REPORT INFORMATION
  Report Type: Spontaneous
  Country: AT (occurrence: AT)
  Receive Date: 20211215
  Receipt Date: 20211215
  Transmission Date: 20220304
  Serious: Yes (Death, Hospitalization, Other)
  Sender: FDA-Public Use
  Company Number: AT-GlaxoSmithKline-AT2021GSK251549

PATIENT
  Age: 41 Year
  Sex: Male

DRUGS (12)
  1. LAMIVUDINE [Suspect]
     Active Substance: LAMIVUDINE
     Indication: HIV infection
     Dosage: UNK
     Dates: start: 2020, end: 2020
  2. LAMIVUDINE [Suspect]
     Active Substance: LAMIVUDINE
     Indication: Hepatitis D
  3. LAMIVUDINE [Suspect]
     Active Substance: LAMIVUDINE
     Indication: Hepatitis B
  4. DOLUTEGRAVIR [Suspect]
     Active Substance: DOLUTEGRAVIR
     Indication: HIV infection
     Dosage: UNK
     Dates: start: 2018
  5. DOLUTEGRAVIR [Suspect]
     Active Substance: DOLUTEGRAVIR
     Indication: Hepatitis B
  6. DOLUTEGRAVIR [Suspect]
     Active Substance: DOLUTEGRAVIR
     Indication: Hepatitis D
  7. TENOFOVIR ALAFENAMIDE FUMARATE [Concomitant]
     Active Substance: TENOFOVIR ALAFENAMIDE FUMARATE
     Indication: HIV infection
     Dosage: UNK
     Dates: start: 2020
  8. TENOFOVIR ALAFENAMIDE FUMARATE [Concomitant]
     Active Substance: TENOFOVIR ALAFENAMIDE FUMARATE
     Indication: Hepatitis B
  9. TENOFOVIR ALAFENAMIDE FUMARATE [Concomitant]
     Active Substance: TENOFOVIR ALAFENAMIDE FUMARATE
     Indication: Hepatitis D
  10. EMTRICITABINE [Concomitant]
     Active Substance: EMTRICITABINE
     Indication: HIV infection
     Dosage: UNK
     Dates: start: 2020
  11. EMTRICITABINE [Concomitant]
     Active Substance: EMTRICITABINE
     Indication: Hepatitis B
  12. EMTRICITABINE [Concomitant]
     Active Substance: EMTRICITABINE
     Indication: Hepatitis D

REACTIONS (6)
  - Hepatitis B [Recovering/Resolving]
  - Acute on chronic liver failure [Fatal]
  - Pathogen resistance [Unknown]
  - Hepatic function abnormal [Unknown]
  - Septic shock [Unknown]
  - Spontaneous bacterial peritonitis [Unknown]

NARRATIVE: CASE EVENT DATE: 20201101
